FAERS Safety Report 7739560-1 (Version None)
Quarter: 2011Q3

REPORT INFORMATION
  Report Type: 
  Country: None (occurrence: None)
  Receive Date: 20110906
  Receipt Date: 20110826
  Transmission Date: 20111222
  Serious: Yes (Other)
  Sender: FDA-Public Use
  Company Number: 2011MA012836

PATIENT
  Age: 61 Year
  Sex: Male

DRUGS (4)
  1. ESOMEPRAZOLE (ESOMEPRAZOLE) [Suspect]
     Indication: OESOPHAGITIS
     Dosage: 40 MG;QD;PO
     Route: 048
     Dates: start: 19901123
  2. LEVOTHYROXINE SODIUM [Suspect]
     Indication: HYPOTHYROIDISM
     Dosage: 100 MCG;QD;PO
     Route: 048
     Dates: start: 20100728
  3. METFORMIN HYDROCHLORIDE [Suspect]
     Indication: DIABETES MELLITUS
     Dosage: 1000 MG;QD;PO
     Route: 048
     Dates: start: 20090101
  4. CLOZARIL [Suspect]
     Indication: SCHIZOPHRENIA
     Dosage: QD;PO
     Route: 048
     Dates: start: 20050926

REACTIONS (4)
  - OESOPHAGEAL CANCER METASTATIC [None]
  - TERMINAL STATE [None]
  - METASTASES TO THE MEDIASTINUM [None]
  - DIABETES MELLITUS [None]
